FAERS Safety Report 5633902-9 (Version None)
Quarter: 2008Q1

REPORT INFORMATION
  Report Type: 
  Country: None (occurrence: None)
  Receive Date: 20080221
  Receipt Date: 20080215
  Transmission Date: 20080703
  Serious: Yes (Other)
  Sender: FDA-Public Use
  Company Number: US-BOEHRINGER INGELHEIM GMBH, GERMANY-2008-BP-02369BP

PATIENT
  Age: 63 Year
  Sex: Female

DRUGS (5)
  1. SPIRIVA [Suspect]
     Route: 055
     Dates: start: 20070901
  2. VENTOLIN [Concomitant]
     Route: 055
  3. FLOVENT [Concomitant]
     Route: 055
  4. UNIPHYL [Concomitant]
  5. LORAZEPAM [Concomitant]

REACTIONS (1)
  - DRUG INEFFECTIVE [None]
